FAERS Safety Report 13211803 (Version 3)
Quarter: 2017Q3

REPORT INFORMATION
  Report Type: Spontaneous
  Country: US (occurrence: US)
  Receive Date: 20170210
  Receipt Date: 20170706
  Transmission Date: 20171127
  Serious: Yes (Other)
  Sender: FDA-Public Use
  Company Number: US-BAYER-2017-020918

PATIENT
  Age: 31 Year
  Sex: Male
  Weight: 79.36 kg

DRUGS (5)
  1. KOGENATE FS [Suspect]
     Active Substance: ANTIHEMOPHILIC FACTOR, HUMAN RECOMBINANT
     Indication: FACTOR VIII DEFICIENCY
     Dosage: (INFUSED DAIY FOR 5 DAYS; TARGET JOINT: BOTH ELBOWS)
  2. NEXIUM [Concomitant]
     Active Substance: ESOMEPRAZOLE MAGNESIUM
  3. KOGENATE FS [Suspect]
     Active Substance: ANTIHEMOPHILIC FACTOR, HUMAN RECOMBINANT
     Indication: FACTOR VIII DEFICIENCY
     Dosage: 2000 U, QOD, INFUSE ~2000 UNITS (+/-10%) IVEVERY OTHER DAY + DAILY AS NEEDED
     Route: 042
     Dates: start: 201105
  4. BENICAR [Concomitant]
     Active Substance: OLMESARTAN MEDOXOMIL
  5. KOGENATE FS [Suspect]
     Active Substance: ANTIHEMOPHILIC FACTOR, HUMAN RECOMBINANT
     Indication: FACTOR VIII DEFICIENCY
     Dosage: 2000 U, QOD, INFUSE ~2000 UNITS (+/-10%) IVEVERY OTHER DAY + DAILY AS NEEDED
     Route: 042
     Dates: start: 201105

REACTIONS (5)
  - Limb injury [None]
  - Haemorrhage [Unknown]
  - Haemorrhage [Unknown]
  - Abdominal pain [Unknown]
  - Intra-abdominal haemorrhage [Unknown]

NARRATIVE: CASE EVENT DATE: 201701
